FAERS Safety Report 8227698-4 (Version None)
Quarter: 2012Q1

REPORT INFORMATION
  Report Type: 
  Country: None (occurrence: None)
  Receive Date: 20120322
  Receipt Date: 20120319
  Transmission Date: 20120608
  Serious: Yes (Death, Life-Threatening, Hospitalization)
  Sender: FDA-Public Use
  Company Number: US-CELGENEUS-163-21880-11122165

PATIENT
  Sex: Male
  Weight: 108.96 kg

DRUGS (8)
  1. ALLOPURINOL [Concomitant]
     Route: 065
  2. LISINOPRIL [Concomitant]
     Route: 065
  3. PRAVASTATIN [Concomitant]
     Route: 065
  4. REVLIMID [Suspect]
     Indication: MULTIPLE MYELOMA
     Dosage: 10 MILLIGRAM
     Route: 048
     Dates: start: 20111103, end: 20111201
  5. GLIMEPIRIDE [Concomitant]
     Route: 065
  6. TERAZOSIN HCL [Concomitant]
     Route: 065
  7. PREDNISONE TAB [Concomitant]
     Route: 065
  8. ALKERAN [Concomitant]
     Route: 065

REACTIONS (5)
  - MYOCARDIAL INFARCTION [None]
  - WHITE BLOOD CELL COUNT DECREASED [None]
  - PLATELET COUNT DECREASED [None]
  - ASTHENIA [None]
  - RENAL IMPAIRMENT [None]
